FAERS Safety Report 15687657 (Version 1)
Quarter: 2018Q4

REPORT INFORMATION
  Report Type: Spontaneous
  Country: DE (occurrence: DE)
  Receive Date: 20181205
  Receipt Date: 20181205
  Transmission Date: 20190205
  Serious: Yes (Death, Other)
  Sender: FDA-Public Use
  Company Number: DE-009507513-1811DEU011122

PATIENT
  Age: 70 Year
  Sex: Female

DRUGS (6)
  1. DIAZEP [Suspect]
     Active Substance: DIAZEPAM
     Dosage: 10 MILLIGRAM, QD
     Dates: start: 19970603, end: 199707
  2. EUGLUCON N [Suspect]
     Active Substance: GLYBURIDE
     Dosage: 7 MILLIGRAM, QD
     Dates: start: 19970603, end: 199707
  3. NITRENDIPINE [Suspect]
     Active Substance: NITRENDIPINE
     Dosage: 20 MILLIGRAM, QD
     Dates: start: 19970716, end: 199707
  4. REMERGIL [Suspect]
     Active Substance: MIRTAZAPINE
     Dosage: 30 MILLIGRAM, QD
     Dates: start: 19970627, end: 199707
  5. TRIAMTEREN COMP [Suspect]
     Active Substance: HYDROCHLOROTHIAZIDE\TRIAMTERENE
     Dosage: 1 DOSAGE FORM, QD (ALSO REPORTED AS 50/25 MG)
     Dates: start: 19970603, end: 199707
  6. TIMOSINE [Suspect]
     Active Substance: TIMOLOL MALEATE
     Dosage: UNK
     Dates: start: 19970603, end: 199707

REACTIONS (1)
  - Completed suicide [Fatal]

NARRATIVE: CASE EVENT DATE: 19970719
